FAERS Safety Report 9342837 (Version 2)
Quarter: 2013Q3

REPORT INFORMATION
  Report Type: Spontaneous
  Country: US (occurrence: US)
  Receive Date: 20130611
  Receipt Date: 20130911
  Transmission Date: 20140515
  Serious: Yes (Other)
  Sender: FDA-Public Use
  Company Number: US-GLAXOSMITHKLINE-A1025714A

PATIENT
  Age: 20 Year
  Sex: Female
  Weight: 58.9 kg

DRUGS (5)
  1. ADVAIR [Suspect]
     Indication: ASTHMA
     Dosage: 1PUFF TWICE PER DAY
     Route: 055
     Dates: end: 20111220
  2. ZYRTEC-D [Concomitant]
  3. ALBUTEROL [Concomitant]
  4. LOESTRIN [Concomitant]
  5. MUCINEX [Concomitant]

REACTIONS (7)
  - Laryngitis fungal [Recovered/Resolved]
  - Oropharyngitis fungal [Recovered/Resolved]
  - Aphonia [Recovered/Resolved]
  - Vocal cord inflammation [Recovered/Resolved]
  - Multiple allergies [Recovered/Resolved]
  - Nasopharyngitis [Recovered/Resolved]
  - Drug administration error [Unknown]
